FAERS Safety Report 8666003 (Version 2)
Quarter: 2012Q4

REPORT INFORMATION
  Report Type: 
  Country: CA (occurrence: CA)
  Receive Date: 20120716
  Receipt Date: 20120829
  Transmission Date: 20130627
  Serious: Yes (Disabling)
  Sender: FDA-Public Use
  Company Number: CA-PFIZER INC-2012168026

PATIENT
  Age: 65 Year
  Sex: Female
  Weight: 92 kg

DRUGS (7)
  1. TECTA [Suspect]
     Indication: GASTROOESOPHAGEAL REFLUX DISEASE
     Dosage: 40 mg, 1x/day
     Route: 065
     Dates: start: 20111104, end: 20111203
  2. AMITRIPTYLINE [Concomitant]
     Dosage: 25 mg, 1x/day (at bed time)
  3. CRESTOR [Concomitant]
     Dosage: 20 mg, 1x/day
  4. EZETROL [Concomitant]
     Dosage: 10 mg, 1x/day
  5. OMNARIS [Concomitant]
     Dosage: 2 sprays in each nostril
     Route: 045
  6. SYMBICORT [Concomitant]
     Dosage: 2 in 1 D
  7. ZESTRIL [Concomitant]
     Dosage: 10 mg, 1x/day

REACTIONS (2)
  - Accommodation disorder [Recovered/Resolved]
  - Visual acuity reduced [Recovered/Resolved]
